FAERS Safety Report 6398162-2 (Version None)
Quarter: 2009Q4

REPORT INFORMATION
  Report Type: 
  Country: None (occurrence: None)
  Receive Date: 20091013
  Receipt Date: 20091006
  Transmission Date: 20100525
  Serious: Yes (Hospitalization, Congenital Anomaly, Other)
  Sender: FDA-Public Use
  Company Number: CH-BRISTOL-MYERS SQUIBB COMPANY-14811772

PATIENT
  Age: 6 Week
  Sex: Male
  Weight: 3 kg

DRUGS (4)
  1. ABILIFY [Suspect]
     Dosage: 15MG JUN08-04JAN09,5MG FRM4-20JAN09,01AP-01JU09;7.5MG 01JU-03AU09;5MG 04-17AU09;2.5MG 18-22AU09;
     Route: 064
     Dates: start: 20080601, end: 20090822
  2. EFFEXOR [Suspect]
     Dosage: EFEXOR EX
     Route: 064
     Dates: start: 20070602, end: 20090109
  3. ACIDUM FOLICUM [Concomitant]
     Route: 064
  4. VITAMINS + MINERALS [Concomitant]
     Route: 064

REACTIONS (4)
  - ANAL ABSCESS [None]
  - CONGENITAL NAEVUS [None]
  - SUPERNUMERARY NIPPLE [None]
  - WITHDRAWAL SYNDROME [None]
